FAERS Safety Report 13993137 (Version 1)
Quarter: 2017Q3

REPORT INFORMATION
  Report Type: Spontaneous
  Country: ES (occurrence: ES)
  Receive Date: 20170920
  Receipt Date: 20170920
  Transmission Date: 20171128
  Serious: Yes (Death, Hospitalization)
  Sender: FDA-Public Use
  Company Number: ES-JNJFOC-20170914308

PATIENT
  Age: 45 Year
  Sex: Male

DRUGS (5)
  1. FLUVOXAMINE MALEATE. [Interacting]
     Active Substance: FLUVOXAMINE MALEATE
     Indication: PERSONALITY DISORDER
     Route: 048
     Dates: start: 20121106, end: 20150704
  2. TOPIRAMATE. [Interacting]
     Active Substance: TOPIRAMATE
     Indication: PERSONALITY DISORDER
     Route: 048
     Dates: start: 20120907, end: 20150704
  3. QUETIAPINE. [Interacting]
     Active Substance: QUETIAPINE
     Indication: PERSONALITY DISORDER
     Route: 048
     Dates: start: 20121106, end: 20150704
  4. RISPERDAL [Suspect]
     Active Substance: RISPERIDONE
     Indication: PERSONALITY DISORDER
     Route: 048
     Dates: start: 201304, end: 20150704
  5. ENALAPRIL MALEATE. [Concomitant]
     Active Substance: ENALAPRIL MALEATE
     Indication: HYPERTENSION
     Route: 048
     Dates: end: 20150704

REACTIONS (6)
  - Product use in unapproved indication [Unknown]
  - Off label use [Unknown]
  - Multiple organ dysfunction syndrome [Fatal]
  - Hyperthermia [Fatal]
  - Drug interaction [Fatal]
  - Coma [Fatal]

NARRATIVE: CASE EVENT DATE: 20150704
